FAERS Safety Report 7736776-5 (Version None)
Quarter: 2011Q3

REPORT INFORMATION
  Report Type: 
  Country: None (occurrence: None)
  Receive Date: 20110908
  Receipt Date: 20110901
  Transmission Date: 20111222
  Serious: Yes (Hospitalization, Other)
  Sender: FDA-Public Use
  Company Number: PHEH2010US03417

PATIENT
  Sex: Female
  Weight: 59.864 kg

DRUGS (27)
  1. BENZODIAZEPINES [Suspect]
  2. LEXAPRO [Concomitant]
     Route: 048
  3. FEMARA [Concomitant]
  4. HYDROCODONE [Concomitant]
  5. MULTI-VITAMINS [Concomitant]
  6. ROXICET [Concomitant]
  7. FLAGYL [Concomitant]
  8. ASPIRIN [Concomitant]
  9. PHENERGAN [Concomitant]
  10. CITRACAL [Concomitant]
  11. OMEPRAZOLE [Concomitant]
  12. FENTANYL-100 [Concomitant]
  13. ANCEF [Concomitant]
  14. AREDIA [Suspect]
  15. CELEBREX [Concomitant]
  16. MORPHINE [Concomitant]
  17. COLACE [Concomitant]
  18. HALDOL [Concomitant]
  19. ZOMETA [Suspect]
  20. ATIVAN [Concomitant]
  21. CALCIUM CARBONATE [Concomitant]
  22. ANTIBIOTICS [Concomitant]
     Route: 042
  23. ALPRAZOLAM [Concomitant]
  24. PREVACID [Concomitant]
  25. PERCOCET [Concomitant]
  26. MELOXICAM [Concomitant]
  27. ZOLOFT [Concomitant]

REACTIONS (64)
  - BONE PAIN [None]
  - DISABILITY [None]
  - OSTEOARTHRITIS [None]
  - OSTEOMYELITIS [None]
  - DRUG WITHDRAWAL SYNDROME [None]
  - UPPER RESPIRATORY TRACT INFECTION [None]
  - ADJUSTMENT DISORDER [None]
  - NEUROPATHY PERIPHERAL [None]
  - DENTAL PLAQUE [None]
  - METASTASES TO BONE [None]
  - OSTEONECROSIS OF JAW [None]
  - PAIN [None]
  - ARTHRITIS [None]
  - MASTICATION DISORDER [None]
  - DYSPHAGIA [None]
  - MITRAL VALVE INCOMPETENCE [None]
  - CHEST DISCOMFORT [None]
  - BONE NEOPLASM MALIGNANT [None]
  - METASTASES TO SPINE [None]
  - ANXIETY [None]
  - GASTROOESOPHAGEAL REFLUX DISEASE [None]
  - CONFUSIONAL STATE [None]
  - EXPOSED BONE IN JAW [None]
  - PAIN IN JAW [None]
  - IMPULSIVE BEHAVIOUR [None]
  - PARANOIA [None]
  - REACTIVE PSYCHOSIS [None]
  - OSTEOLYSIS [None]
  - DENTURE WEARER [None]
  - OSTEORADIONECROSIS [None]
  - OSTEITIS [None]
  - ORAL DISORDER [None]
  - AFFECTIVE DISORDER [None]
  - BONE LESION [None]
  - PERICARDIAL EFFUSION [None]
  - ANAEMIA [None]
  - GINGIVITIS [None]
  - ANHEDONIA [None]
  - IRON DEFICIENCY ANAEMIA [None]
  - SWELLING [None]
  - TOOTH LOSS [None]
  - PATHOLOGICAL FRACTURE [None]
  - ARTERIOSCLEROSIS [None]
  - ELECTROCARDIOGRAM T WAVE INVERSION [None]
  - INJURY [None]
  - IMPAIRED HEALING [None]
  - HALLUCINATION [None]
  - INSOMNIA [None]
  - WEIGHT DECREASED [None]
  - PANCYTOPENIA [None]
  - FATIGUE [None]
  - FIBROSIS [None]
  - TRICUSPID VALVE INCOMPETENCE [None]
  - LUNG DISORDER [None]
  - COMPRESSION FRACTURE [None]
  - DYSPNOEA [None]
  - ATELECTASIS [None]
  - ERYTHEMA [None]
  - BREAST CANCER [None]
  - PANIC DISORDER [None]
  - SPINAL OSTEOARTHRITIS [None]
  - LUNG INFILTRATION [None]
  - PERICARDITIS [None]
  - PLEURAL EFFUSION [None]
